FAERS Safety Report 6235213-X (Version None)
Quarter: 2009Q2

REPORT INFORMATION
  Report Type: 
  Country: None (occurrence: None)
  Receive Date: 20090618
  Receipt Date: 20090616
  Transmission Date: 20091009
  Serious: Yes (Hospitalization)
  Sender: FDA-Public Use
  Company Number: FR-WYE-G03859109

PATIENT
  Sex: Male

DRUGS (2)
  1. ADVIL [Suspect]
     Dosage: ONE TABLET AS REQUIRED
     Route: 048
     Dates: end: 20090406
  2. DOLIPRANE [Suspect]
     Dosage: ONE DOSE-FORM AS REQUIRED
     Route: 048
     Dates: end: 20090101

REACTIONS (11)
  - ACANTHOSIS [None]
  - BLOOD ALKALINE PHOSPHATASE INCREASED [None]
  - BLOOD LACTATE DEHYDROGENASE INCREASED [None]
  - DERMATITIS EXFOLIATIVE [None]
  - GAMMA-GLUTAMYLTRANSFERASE INCREASED [None]
  - HAEMOGLOBIN DECREASED [None]
  - HYPOTRICHOSIS [None]
  - NEUTROPENIA [None]
  - SERUM FERRITIN DECREASED [None]
  - SKIN LESION [None]
  - TRANSAMINASES INCREASED [None]
